FAERS Safety Report 5152103-4 (Version None)
Quarter: 2006Q4

REPORT INFORMATION
  Report Type: 
  Country: None (occurrence: None)
  Receive Date: 20061113
  Receipt Date: 20061113
  Transmission Date: 20070319
  Serious: Yes (Other)
  Sender: FDA-Public Use
  Company Number: None

PATIENT
  Sex: Male
  Weight: 97 kg

DRUGS (1)
  1. BETA INTERFERON IFN BETA [Suspect]
     Indication: MALIGNANT MELANOMA
     Dosage: 24 MILLION UNITS DAILY SQ
     Route: 058
     Dates: start: 20061012, end: 20061101

REACTIONS (1)
  - PLATELET COUNT DECREASED [None]
